FAERS Safety Report 5120137-1 (Version None)
Quarter: 2006Q4

REPORT INFORMATION
  Report Type: 
  Country: None (occurrence: None)
  Receive Date: 20061002
  Receipt Date: 20061002
  Transmission Date: 20070319
  Serious: Yes (Hospitalization)
  Sender: FDA-Public Use
  Company Number: None

PATIENT
  Age: 56 Year
  Sex: Male

DRUGS (1)
  1. AVANDIA [Suspect]
     Indication: DIABETES MELLITUS
     Dosage: 8 MG QD PO
     Route: 048
     Dates: start: 20060605, end: 20060619

REACTIONS (4)
  - DYSPNOEA [None]
  - FATIGUE [None]
  - FLUID RETENTION [None]
  - TREMOR [None]
